FAERS Safety Report 4660002-7 (Version None)
Quarter: 2005Q2

REPORT INFORMATION
  Report Type: 
  Country: None (occurrence: None)
  Receive Date: 20050421
  Receipt Date: 20050118
  Transmission Date: 20051028
  Serious: Yes (Other)
  Sender: FDA-Public Use
  Company Number: 2005016412

PATIENT
  Age: 23 Year
  Sex: Female
  Weight: 60.3284 kg

DRUGS (2)
  1. RELPAX [Suspect]
     Indication: MIGRAINE
     Dosage: 1 AS NEEDED
     Dates: start: 20040101, end: 20040101
  2. IBUPROFEN [Suspect]
     Indication: ILL-DEFINED DISORDER

REACTIONS (2)
  - DYSKINESIA [None]
  - MUSCULOSKELETAL STIFFNESS [None]
